FAERS Safety Report 6995762 (Version 2)
Quarter: 2018Q4

REPORT INFORMATION
  Report Type: Spontaneous
  Country: GB (occurrence: GB)
  Receive Date: 20090515
  Receipt Date: 20181129
  Transmission Date: 20190205
  Serious: Yes (Other)
  Sender: FDA-Public Use
  Company Number: GB-TEVA-194558ISR

PATIENT
  Age: 38 Year
  Sex: Male
  Weight: 92 kg

DRUGS (6)
  1. DIHIDROCODEINE [Concomitant]
  2. FLUCLOXACILLIN [Concomitant]
     Active Substance: FLUCLOXACILLIN
  3. IBUPROFEN. [Concomitant]
     Active Substance: IBUPROFEN
  4. ZOPICLONE [Concomitant]
     Active Substance: ZOPICLONE
  5. MIRTAZAPINE. [Suspect]
     Active Substance: MIRTAZAPINE
     Dosage: 30 MILLIGRAM DAILY;
     Route: 048
     Dates: start: 20090325, end: 20090414
  6. MIRTAZAPINE. [Suspect]
     Active Substance: MIRTAZAPINE
     Indication: DEPRESSION
     Dosage: 15 MILLIGRAM DAILY;
     Route: 048
     Dates: start: 20090415, end: 20090427

REACTIONS (5)
  - Abdominal pain [Recovered/Resolved]
  - Back pain [Recovered/Resolved]
  - Porphyria acute [Recovered/Resolved]
  - Chest pain [Recovered/Resolved]
  - Nausea [Recovered/Resolved]

NARRATIVE: CASE EVENT DATE: 20090420
